FAERS Safety Report 15923880 (Version 2)
Quarter: 2019Q1

REPORT INFORMATION
  Report Type: Spontaneous
  Country: US (occurrence: US)
  Receive Date: 20190205
  Receipt Date: 20190219
  Transmission Date: 20190417
  Serious: No
  Sender: FDA-Public Use
  Company Number: US-ALLERGAN-1820467US

PATIENT
  Age: 73 Year
  Sex: Female
  Weight: 55.33 kg

DRUGS (1)
  1. BOTOX [Suspect]
     Active Substance: ONABOTULINUMTOXINA
     Indication: HYPERTONIC BLADDER
     Dosage: 150 UNITS, SINGLE
     Route: 043

REACTIONS (2)
  - Off label use [Unknown]
  - Functional gastrointestinal disorder [Not Recovered/Not Resolved]
